FAERS Safety Report 6875872-1 (Version None)
Quarter: 2010Q3

REPORT INFORMATION
  Report Type: 
  Country: None (occurrence: None)
  Receive Date: 20100727
  Receipt Date: 20071203
  Transmission Date: 20110219
  Serious: Yes (Hospitalization, Other)
  Sender: FDA-Public Use
  Company Number: US-PFIZER INC-2006147328

PATIENT
  Sex: Female
  Weight: 72.6 kg

DRUGS (6)
  1. CELEBREX [Suspect]
     Indication: PAIN
     Route: 048
     Dates: start: 20020501
  2. VIOXX [Suspect]
     Indication: OSTEOARTHRITIS
     Dosage: 25MG, 50MG 2 TO 3 TIMES DAILY
     Route: 048
     Dates: start: 20010101
  3. TOPROL-XL [Concomitant]
     Indication: HYPERTENSION
     Dates: start: 20020101
  4. CALAN [Concomitant]
     Indication: CARDIAC DISORDER
     Dates: start: 20020101
  5. ACETYLSALICYLIC ACID SRT [Concomitant]
     Indication: CEREBROVASCULAR ACCIDENT PROPHYLAXIS
     Dates: start: 20010101
  6. ZOCOR [Concomitant]
     Indication: BLOOD CHOLESTEROL INCREASED
     Dates: start: 20020101

REACTIONS (3)
  - DEEP VEIN THROMBOSIS [None]
  - PULMONARY EMBOLISM [None]
  - TRANSIENT ISCHAEMIC ATTACK [None]
